FAERS Safety Report 5240108-4 (Version None)
Quarter: 2007Q1

REPORT INFORMATION
  Report Type: 
  Country: None (occurrence: None)
  Receive Date: 20070216
  Receipt Date: 20070207
  Transmission Date: 20070707
  Serious: Yes (Other)
  Sender: FDA-Public Use
  Company Number: US-PFIZER INC-2007010513

PATIENT
  Sex: Female
  Weight: 44.5 kg

DRUGS (7)
  1. ZITHROMAX [Suspect]
     Indication: MYCOBACTERIUM AVIUM COMPLEX INFECTION
  2. ZYVOX [Suspect]
     Indication: BRONCHITIS
  3. ZYVOX [Suspect]
     Indication: STAPHYLOCOCCAL INFECTION
  4. LABETALOL HCL [Concomitant]
  5. ALL OTHER THERAPEUTIC PRODUCTS [Concomitant]
  6. NORVASC [Concomitant]
  7. MYCOBUTOL [Concomitant]

REACTIONS (4)
  - DIARRHOEA [None]
  - NAUSEA [None]
  - WEIGHT DECREASED [None]
  - WHITE BLOOD CELL COUNT ABNORMAL [None]
